FAERS Safety Report 15847095 (Version 1)
Quarter: 2019Q1

REPORT INFORMATION
  Report Type: Other
  Country: BE (occurrence: BE)
  Receive Date: 20190121
  Receipt Date: 20190121
  Transmission Date: 20190417
  Serious: Yes (Other)
  Sender: FDA-Public Use
  Company Number: BE-APOTEX-2018AP027273

PATIENT
  Sex: Female

DRUGS (1)
  1. MOXIFLOXACIN APOTEX FILMOMHULDE TABLETTEN [Suspect]
     Active Substance: MOXIFLOXACIN
     Indication: PRODUCT USED FOR UNKNOWN INDICATION
     Dosage: 1 DF, SINGLE
     Route: 048

REACTIONS (3)
  - Hypothermia [Recovering/Resolving]
  - Nausea [Recovering/Resolving]
  - Hyperthermia [Recovering/Resolving]
